FAERS Safety Report 19099194 (Version 1)
Quarter: 2021Q2

REPORT INFORMATION
  Report Type: Report from Study
  Country: US (occurrence: US)
  Receive Date: 20210406
  Receipt Date: 20210406
  Transmission Date: 20210717
  Serious: Yes (Congenital Anomaly)
  Sender: FDA-Public Use
  Company Number: US-UCBSA-2021014168

PATIENT
  Age: 0 Year
  Sex: Male
  Weight: 3.27 kg

DRUGS (12)
  1. PEPCID [Concomitant]
     Active Substance: FAMOTIDINE
     Indication: DYSPEPSIA
     Dosage: 1 PILL 3XWEEKLY
     Route: 064
     Dates: start: 20200912, end: 20201026
  2. UNISOM SLEEPMELTS [Concomitant]
     Active Substance: DIPHENHYDRAMINE HYDROCHLORIDE
     Dosage: 12.5 MILLIGRAM, ONCE DAILY (QD)
     Route: 064
     Dates: start: 20200501, end: 20200619
  3. PRENATAL VITAMINS [MINERALS NOS;VITAMINS NOS] [Concomitant]
     Active Substance: MINERALS\VITAMINS
     Dosage: 2PILL ONCE DAILY
     Route: 064
     Dates: start: 20190915, end: 20201026
  4. TDAP [Concomitant]
     Active Substance: TETANUS TOXOID, REDUCED DIPHTHERIA TOXOID AND ACELLULAR PERTUSSIS VACCINE ADSORBED, TDAP
     Indication: PRODUCT USED FOR UNKNOWN INDICATION
     Dosage: 1 SHOT DAILY
     Route: 064
     Dates: start: 20200807, end: 20200807
  5. TYLENOL [Concomitant]
     Active Substance: ACETAMINOPHEN
     Indication: HEADACHE
     Dosage: 2PILL X 1DAILY
     Route: 064
     Dates: start: 20200908, end: 20200908
  6. VITAMIN B6 [Concomitant]
     Active Substance: PYRIDOXINE HYDROCHLORIDE
     Indication: NAUSEA
     Dosage: 25 MILLIGRAM X 3 DAILY
     Route: 064
     Dates: start: 20200313, end: 20200619
  7. TUMS [Concomitant]
     Active Substance: CALCIUM CARBONATE
     Indication: DYSPEPSIA
     Dosage: 2 PILL X3WEEKLY
     Route: 064
     Dates: start: 20200912, end: 20201026
  8. UNISOM SLEEPMELTS [Concomitant]
     Active Substance: DIPHENHYDRAMINE HYDROCHLORIDE
     Indication: NAUSEA
     Dosage: 25 MILLIGRAM, ONCE DAILY (QD)
     Route: 064
     Dates: start: 20200306, end: 20200430
  9. CAFFEINE. [Concomitant]
     Active Substance: CAFFEINE
     Dosage: 1 SERVING 6.5WEEKLY
     Route: 064
     Dates: start: 202002, end: 20201026
  10. CERTOLIZUMAB PEGOL RA [Suspect]
     Active Substance: CERTOLIZUMAB PEGOL
     Indication: PSORIASIS
     Dosage: 200 MILLIGRAM, 2X/MONTH
     Route: 064
     Dates: start: 20200207, end: 20200207
  11. COLACE [Concomitant]
     Active Substance: DOCUSATE SODIUM
     Indication: CONSTIPATION
     Dosage: 100 MILLIGRAM, ONCE DAILY (QD)
     Route: 064
     Dates: start: 20200624, end: 20200624
  12. FLU VACCINE VII [Concomitant]
     Active Substance: INFLUENZA VIRUS VACCINE
     Indication: PRODUCT USED FOR UNKNOWN INDICATION
     Dosage: 1 SHOT DAILY
     Route: 064
     Dates: start: 20201002, end: 20201002

REACTIONS (6)
  - Tachypnoea [Unknown]
  - Ventricular extrasystoles [Recovering/Resolving]
  - Left ventricular hypertrophy [Unknown]
  - Maternal exposure before pregnancy [Unknown]
  - Patent ductus arteriosus [Recovered/Resolved]
  - Atrial septal defect [Not Recovered/Not Resolved]

NARRATIVE: CASE EVENT DATE: 2020
